FAERS Safety Report 19755246 (Version 1)
Quarter: 2021Q3

REPORT INFORMATION
  Report Type: Spontaneous
  Country: US (occurrence: US)
  Receive Date: 20210827
  Receipt Date: 20210827
  Transmission Date: 20211014
  Serious: Yes (Life-Threatening, Hospitalization)
  Sender: FDA-Public Use
  Company Number: US-MYLANLABS-2021M1055527

PATIENT
  Age: 4 Year
  Sex: Male

DRUGS (8)
  1. MAGNESIUM [Suspect]
     Active Substance: MAGNESIUM
     Indication: VENTRICULAR TACHYARRHYTHMIA
  2. MAGNESIUM [Suspect]
     Active Substance: MAGNESIUM
     Indication: CIRCULATORY COLLAPSE
     Dosage: UNK
     Route: 065
  3. SODIUM BICARBONATE. [Concomitant]
     Active Substance: SODIUM BICARBONATE
     Indication: CIRCULATORY COLLAPSE
     Dosage: 1?2 MEQ/KG
     Route: 040
  4. CALCIUM [Suspect]
     Active Substance: CALCIUM
     Indication: VENTRICULAR TACHYARRHYTHMIA
  5. SODIUM BICARBONATE. [Concomitant]
     Active Substance: SODIUM BICARBONATE
     Indication: VENTRICULAR TACHYARRHYTHMIA
     Dosage: AT A RATE OF 1 MEQ/KG
     Route: 040
  6. POTASSIUM [Suspect]
     Active Substance: POTASSIUM
     Indication: CIRCULATORY COLLAPSE
     Dosage: UNK
     Route: 065
  7. POTASSIUM [Suspect]
     Active Substance: POTASSIUM
     Indication: VENTRICULAR TACHYARRHYTHMIA
  8. CALCIUM [Suspect]
     Active Substance: CALCIUM
     Indication: CIRCULATORY COLLAPSE
     Dosage: UNK
     Route: 065

REACTIONS (1)
  - Drug ineffective [Unknown]
